FAERS Safety Report 9028495 (Version 2)
Quarter: 2013Q1

REPORT INFORMATION
  Report Type: Report from Study
  Country: SE (occurrence: SE)
  Receive Date: 20130124
  Receipt Date: 20130313
  Transmission Date: 20140127
  Serious: Yes (Hospitalization)
  Sender: FDA-Public Use
  Company Number: SE-PFIZER INC-2013021355

PATIENT
  Age: 67 Year
  Sex: Female
  Weight: 43 kg

DRUGS (13)
  1. TORISEL [Suspect]
     Indication: METASTATIC RENAL CELL CARCINOMA
     Dosage: 25 MG, WEEKLY
     Route: 042
     Dates: start: 20120126
  2. NEXIUM [Concomitant]
     Indication: CONSTIPATION
     Dosage: 40 MG, 1X/DAY
     Route: 048
  3. CILAXORAL [Concomitant]
     Indication: CONSTIPATION
     Dosage: UNK
     Route: 048
  4. MOVICOL [Concomitant]
     Indication: CONSTIPATION
     Dosage: 1 X 1
     Route: 048
  5. RELISTOR [Concomitant]
     Indication: CONSTIPATION
     Dosage: UNK
  6. KREON [Concomitant]
     Dosage: 25000 UNITS, 3X/DAY
  7. KALCIPOS [Concomitant]
     Dosage: 500 MG/400 IU 1 X 1
     Route: 048
  8. ALENDRONATE SODIUM [Concomitant]
     Dosage: 70 MG, WEEKLY
     Route: 048
  9. INSTANYL [Concomitant]
     Indication: PAIN
     Dosage: 50 UG, UNK
     Route: 045
  10. IKTORIVIL [Concomitant]
     Dosage: 0.5 MG, UNK
     Route: 048
  11. METHADONE [Concomitant]
     Indication: PAIN
     Dosage: 10 MG, 4X/DAY
     Route: 048
  12. NASONEX [Concomitant]
     Dosage: 50 UG, UNK
     Route: 045
  13. PULMICORT [Concomitant]
     Dosage: 200 UG, 2X/DAY

REACTIONS (2)
  - Fatigue [Recovered/Resolved]
  - Diarrhoea [Recovered/Resolved]
